FAERS Safety Report 9936977 (Version 1)
Quarter: 2014Q1

REPORT INFORMATION
  Report Type: Spontaneous
  Country: US (occurrence: None)
  Receive Date: 20140115
  Receipt Date: 20140115
  Transmission Date: 20141002
  Serious: No
  Sender: FDA-Public Use
  Company Number: 2013US002657

PATIENT
  Age: 49 Year
  Sex: Female
  Weight: 83 kg

DRUGS (10)
  1. ICLUSIG (PONATINIB) TABLET, 45MG [Suspect]
     Indication: CHRONIC MYELOID LEUKAEMIA
     Route: 048
     Dates: start: 20130917
  2. FENTANYL (FENTANYL) [Concomitant]
  3. PROZAC (FLUOXETINE HYDROCHLORIDE) [Concomitant]
  4. BISACODYL (BISACODYL) [Concomitant]
  5. VITAMIN D (VITAMIN D) [Concomitant]
  6. MAGNESIUM (MAGNESIUM) [Concomitant]
  7. TRAMADOL (TRAMADOL) [Concomitant]
  8. VITAMIN B12 (CYANOCOBALAMIN AND ANALOGUES) [Concomitant]
  9. KLONOPIN (CLONAZEPAM) [Concomitant]
  10. RITALIN [Concomitant]

REACTIONS (1)
  - Feeling abnormal [None]
